FAERS Safety Report 17842738 (Version 1)
Quarter: 2020Q2

REPORT INFORMATION
  Report Type: Spontaneous
  Country: US (occurrence: US)
  Receive Date: 20200529
  Receipt Date: 20200529
  Transmission Date: 20200714
  Serious: No
  Sender: FDA-Public Use
  Company Number: US-009507513-2005USA005809

PATIENT
  Sex: Male

DRUGS (1)
  1. BELSOMRA [Suspect]
     Active Substance: SUVOREXANT
     Indication: MENTAL DISORDER

REACTIONS (4)
  - Thinking abnormal [Unknown]
  - Dysarthria [Unknown]
  - Confusional state [Unknown]
  - Product use in unapproved indication [Unknown]
